FAERS Safety Report 17189103 (Version 2)
Quarter: 2019Q4

REPORT INFORMATION
  Report Type: Spontaneous
  Country: JP (occurrence: JP)
  Receive Date: 20191223
  Receipt Date: 20191224
  Transmission Date: 20200122
  Serious: Yes (Hospitalization, Other)
  Sender: FDA-Public Use
  Company Number: JP-ROCHE-2501900

PATIENT
  Age: 6 Decade
  Sex: Female

DRUGS (2)
  1. HERCEPTIN [Suspect]
     Active Substance: TRASTUZUMAB
     Indication: BREAST CANCER
     Dosage: DOSAGE IS UNCERTAIN.
     Route: 041
     Dates: start: 201807
  2. HERCEPTIN [Suspect]
     Active Substance: TRASTUZUMAB
     Dosage: DOSAGE IS UNCERTAIN.
     Route: 041
     Dates: start: 201902

REACTIONS (2)
  - Cerebral infarction [Unknown]
  - Cardiomyopathy [Recovering/Resolving]

NARRATIVE: CASE EVENT DATE: 201904
